FAERS Safety Report 13207330 (Version 1)
Quarter: 2017Q1

REPORT INFORMATION
  Report Type: Spontaneous
  Country: US (occurrence: US)
  Receive Date: 20170209
  Receipt Date: 20170209
  Transmission Date: 20170428
  Serious: Yes (Other)
  Sender: FDA-Public Use
  Company Number: None

PATIENT
  Age: 25 Year
  Sex: Female
  Weight: 97.52 kg

DRUGS (3)
  1. PARAGARD T 380A [Suspect]
     Active Substance: COPPER
  2. METOPROLOL. [Concomitant]
     Active Substance: METOPROLOL
  3. LICENOPROL [Concomitant]

REACTIONS (5)
  - Headache [None]
  - Hormone level abnormal [None]
  - Amenorrhoea [None]
  - Device expulsion [None]
  - Infertility female [None]

NARRATIVE: CASE EVENT DATE: 20130501
